FAERS Safety Report 5398324-7 (Version None)
Quarter: 2007Q3

REPORT INFORMATION
  Report Type: 
  Country: None (occurrence: None)
  Receive Date: 20070724
  Receipt Date: 20070713
  Transmission Date: 20080115
  Serious: Yes (Hospitalization)
  Sender: FDA-Public Use
  Company Number: 235863K07USA

PATIENT
  Age: 43 Year
  Sex: Female
  Weight: 61.2356 kg

DRUGS (3)
  1. REBIF [Suspect]
     Indication: MULTIPLE SCLEROSIS
     Dosage: 44 MCG, 3 IN 1 WEEKS, SUBCUTANEOUS
     Route: 058
     Dates: start: 20060626
  2. ADVAIR (SERETIDE) [Concomitant]
  3. PROZAC [Concomitant]

REACTIONS (4)
  - BLOOD DISORDER [None]
  - INFECTION [None]
  - KIDNEY INFECTION [None]
  - URINARY TRACT INFECTION [None]
